FAERS Safety Report 7227194-7 (Version None)
Quarter: 2010Q4

REPORT INFORMATION
  Report Type: 
  Country: None (occurrence: None)
  Receive Date: 20101126
  Receipt Date: 20100727
  Transmission Date: 20110411
  Serious: No
  Sender: FDA-Public Use
  Company Number: 313165

PATIENT
  Age: 54 Year
  Sex: Female

DRUGS (3)
  1. VICTOZA [Suspect]
     Indication: TYPE 2 DIABETES MELLITUS
     Dosage: SEE IMAGE
     Route: 058
     Dates: start: 20100702
  2. GLUCOPHAGE /00082701/ (METFORMIN) [Concomitant]
  3. ACTOS /01460201/ (PIOGLITAZOLE) [Concomitant]

REACTIONS (3)
  - APHONIA [None]
  - BLOOD GLUCOSE INCREASED [None]
  - WEIGHT DECREASED [None]
